FAERS Safety Report 13330541 (Version 2)
Quarter: 2017Q1

REPORT INFORMATION
  Report Type: Spontaneous
  Country: FR (occurrence: FR)
  Receive Date: 20170314
  Receipt Date: 20170331
  Transmission Date: 20170428
  Serious: Yes (Hospitalization, Other)
  Sender: FDA-Public Use
  Company Number: FR-009507513-1703FRA005352

PATIENT
  Age: 82 Year
  Sex: Female

DRUGS (8)
  1. VELMETIA [Concomitant]
     Active Substance: METFORMIN\SITAGLIPTIN
     Indication: TYPE 2 DIABETES MELLITUS
     Dosage: 50 MG, BID (2/DAY)
     Route: 048
     Dates: end: 20170220
  2. MK-0000 [Suspect]
     Active Substance: INVESTIGATIONAL PRODUCT
  3. PAROXETINE HYDROCHLORIDE. [Concomitant]
     Active Substance: PAROXETINE HYDROCHLORIDE
     Dosage: UNK
  4. KARDEGIC [Concomitant]
     Active Substance: ASPIRIN LYSINE
     Dosage: UNK
  5. INEGY [Concomitant]
     Active Substance: EZETIMIBE\SIMVASTATIN
     Dosage: UNK
     Route: 048
  6. XENETIX [Suspect]
     Active Substance: IOBITRIDOL
     Indication: PRODUCT USED FOR UNKNOWN INDICATION
     Dosage: UNK
  7. VALACYCLOVIR HYDROCHLORIDE. [Concomitant]
     Active Substance: VALACYCLOVIR HYDROCHLORIDE
     Indication: PRODUCT USED FOR UNKNOWN INDICATION
     Dosage: 1 G, TID (3/DAY)
     Route: 048
     Dates: start: 20170216, end: 20170220
  8. NATRIXAM [Concomitant]
     Active Substance: AMLODIPINE\INDAPAMIDE
     Dosage: UNK

REACTIONS (2)
  - Acute kidney injury [Unknown]
  - Overdose [Unknown]

NARRATIVE: CASE EVENT DATE: 201702
